FAERS Safety Report 15384713 (Version 1)
Quarter: 2018Q3

REPORT INFORMATION
  Report Type: Spontaneous
  Country: US (occurrence: US)
  Receive Date: 20180914
  Receipt Date: 20180914
  Transmission Date: 20181010
  Serious: Yes (Other)
  Sender: FDA-Public Use
  Company Number: US-AMGEN-USASP2018124400

PATIENT
  Age: 82 Year
  Sex: Female

DRUGS (2)
  1. SENSIPAR [Suspect]
     Active Substance: CINACALCET HYDROCHLORIDE
     Indication: HYPERPARATHYROIDISM
     Dosage: 30 MG, UNK
     Route: 065
     Dates: start: 201712
  2. SENSIPAR [Suspect]
     Active Substance: CINACALCET HYDROCHLORIDE
     Dosage: 60 MG, UNK
     Route: 065
     Dates: start: 20180622

REACTIONS (4)
  - Polymyalgia rheumatica [Unknown]
  - Fatigue [Unknown]
  - Intentional product misuse [Unknown]
  - Nausea [Unknown]

NARRATIVE: CASE EVENT DATE: 2017
